FAERS Safety Report 5897609-5 (Version None)
Quarter: 2008Q3

REPORT INFORMATION
  Report Type: 
  Country: None (occurrence: None)
  Receive Date: 20080925
  Receipt Date: 20080916
  Transmission Date: 20090109
  Serious: Yes (Other)
  Sender: FDA-Public Use
  Company Number: GB-TYCO HEALTHCARE/MALLINCKRODT-T200801521

PATIENT

DRUGS (10)
  1. TECHNETIUM TC 99M [Suspect]
     Dates: start: 20070301
  2. ULTRA-TECHNEKOW FM [Suspect]
     Dates: start: 20070301
  3. ATENOLOL [Concomitant]
     Dosage: 25 MG, QD
  4. ETHINYLOESTRADIOL [Concomitant]
     Dosage: 100 UG, QD
     Route: 048
  5. FOLIC ACID [Concomitant]
     Dosage: 5 MG, QD
  6. MODURETIC 5-50 [Concomitant]
     Dosage: 1 DF, QD
  7. QUININE SULPHATE [Concomitant]
     Dosage: 300 MG, QD
  8. SIMVASTATIN [Concomitant]
     Dosage: 20 MG, QD
  9. LEVOTHYROXINE SODIUM [Concomitant]
     Dosage: 150 UG, QD
  10. VITAMIN B12                        /00056201/ [Concomitant]
     Dosage: 1 G, QD

REACTIONS (5)
  - DRY SKIN [None]
  - ERYTHEMA [None]
  - MASS [None]
  - OEDEMA PERIPHERAL [None]
  - SKIN IRRITATION [None]
